APPROVED DRUG PRODUCT: MYCOSTATIN
Active Ingredient: NYSTATIN
Strength: 500,000 UNITS
Dosage Form/Route: TABLET;ORAL
Application: A060574 | Product #001
Applicant: DELCOR ASSET CORP
Approved: Approved Prior to Jan 1, 1982 | RLD: No | RS: No | Type: DISCN